FAERS Safety Report 13843080 (Version 1)
Quarter: 2017Q3

REPORT INFORMATION
  Report Type: Spontaneous
  Country: DE (occurrence: DE)
  Receive Date: 20170808
  Receipt Date: 20170808
  Transmission Date: 20171127
  Serious: Yes (Other)
  Sender: FDA-Public Use
  Company Number: DE-GLAXOSMITHKLINE-DE2017GSK121043

PATIENT
  Age: 79 Year
  Sex: Female
  Weight: 70 kg

DRUGS (4)
  1. BERODUAL [Concomitant]
     Active Substance: FENOTEROL HYDROBROMIDE\IPRATROPIUM BROMIDE
     Indication: PRODUCT USED FOR UNKNOWN INDICATION
     Dosage: UNK
     Dates: start: 2010
  2. AMLODIPIN [Concomitant]
     Active Substance: AMLODIPINE BESYLATE
     Indication: HYPERTENSION
     Dosage: 1 DF, QD
     Route: 048
     Dates: start: 2010
  3. VOLTAREN SCHMERZGEL FORTE [Suspect]
     Active Substance: DICLOFENAC DIETHYLAMINE
     Indication: ARTHRALGIA
     Dosage: UNK
     Route: 061
     Dates: start: 20170616, end: 20170705
  4. MARCUMAR [Interacting]
     Active Substance: PHENPROCOUMON
     Indication: HEART VALVE REPLACEMENT
     Dosage: UNK UNK, PRN
     Route: 048
     Dates: start: 2010

REACTIONS (4)
  - Eye haemorrhage [Recovered/Resolved]
  - International normalised ratio increased [Recovered/Resolved]
  - General physical health deterioration [Unknown]
  - Drug interaction [Unknown]

NARRATIVE: CASE EVENT DATE: 20170630
